FAERS Safety Report 4400663-0 (Version None)
Quarter: 2004Q3

REPORT INFORMATION
  Report Type: 
  Country: None (occurrence: None)
  Receive Date: 20040719
  Receipt Date: 20040707
  Transmission Date: 20050211
  Serious: Yes (Hospitalization)
  Sender: FDA-Public Use
  Company Number: JP-BRISTOL-MYERS SQUIBB COMPANY-12636106

PATIENT
  Age: 45 Year
  Sex: Male

DRUGS (7)
  1. STOCRIN CAPS [Suspect]
     Indication: HIV INFECTION
     Dosage: ONCE DAILY
     Route: 048
     Dates: start: 20040127, end: 20040208
  2. ZERIT [Suspect]
     Indication: HIV INFECTION
     Route: 048
     Dates: start: 20040127, end: 20040331
  3. EPIVIR [Suspect]
     Indication: HIV INFECTION
     Route: 048
     Dates: start: 20040127, end: 20040331
  4. FORTOVASE [Suspect]
     Indication: HIV INFECTION
     Route: 048
     Dates: start: 20040209, end: 20040331
  5. NORVIR [Suspect]
     Indication: HIV INFECTION
     Route: 048
     Dates: start: 20040209, end: 20040331
  6. DIFLUCAN [Concomitant]
     Route: 048
     Dates: start: 20040108, end: 20040331
  7. ZITHROMAX [Concomitant]
     Route: 048
     Dates: start: 20040108, end: 20040205

REACTIONS (4)
  - ATYPICAL MYCOBACTERIAL INFECTION [None]
  - IMMUNE RECONSTITUTION SYNDROME [None]
  - MALAISE [None]
  - PYREXIA [None]
